FAERS Safety Report 4834883-8 (Version None)
Quarter: 2005Q4

REPORT INFORMATION
  Report Type: 
  Country: None (occurrence: None)
  Receive Date: 20051115
  Receipt Date: 20051025
  Transmission Date: 20060501
  Serious: Yes (Other)
  Sender: FDA-Public Use
  Company Number: 2005084703

PATIENT
  Age: 20 Year
  Sex: Male
  Weight: 63.5036 kg

DRUGS (2)
  1. BENADRYL [Suspect]
     Indication: EYE IRRITATION
     Dosage: 2 TABLETS ONCE, ORAL
     Route: 048
     Dates: start: 20050603, end: 20050603
  2. VISINE II EYE DROPS [Suspect]
     Indication: EYE IRRITATION
     Dosage: UNSPECIFIED AMOUNT ONCE, OPHTHALMIC
     Route: 047
     Dates: start: 20050603, end: 20050603

REACTIONS (2)
  - DRUG HYPERSENSITIVITY [None]
  - VOMITING [None]
